FAERS Safety Report 18661164 (Version 1)
Quarter: 2020Q4

REPORT INFORMATION
  Report Type: Spontaneous
  Country: FR (occurrence: FR)
  Receive Date: 20201224
  Receipt Date: 20201224
  Transmission Date: 20210114
  Serious: Yes (Hospitalization)
  Sender: FDA-Public Use
  Company Number: FR-TEVA-2020-FR-1862896

PATIENT
  Age: 15 Year
  Sex: Female
  Weight: 60 kg

DRUGS (1)
  1. ANTADYS 100 MG, COMPRIME PELLICULE [Suspect]
     Active Substance: FLURBIPROFEN
     Indication: DYSMENORRHOEA
     Dosage: 200 MILLIGRAM DAILY; COMPRIME PELLICULE
     Route: 065
     Dates: start: 20200828, end: 20200828

REACTIONS (1)
  - Acute kidney injury [Recovered/Resolved]

NARRATIVE: CASE EVENT DATE: 20200830
